FAERS Safety Report 7171037-7 (Version None)
Quarter: 2010Q4

REPORT INFORMATION
  Report Type: 
  Country: None (occurrence: None)
  Receive Date: 20101217
  Receipt Date: 20101203
  Transmission Date: 20110411
  Serious: Yes (Other)
  Sender: FDA-Public Use
  Company Number: BR-AMGEN-BRASP2010008643

PATIENT

DRUGS (2)
  1. ENBREL [Suspect]
     Indication: RHEUMATOID ARTHRITIS
     Dosage: 50 MG, WEEKLY
     Route: 058
     Dates: start: 20100917
  2. PREDNISONE [Concomitant]
     Dosage: 5 MG, 1 TABLET IN THE MORNING

REACTIONS (2)
  - ACCIDENT [None]
  - LOWER LIMB FRACTURE [None]
